FAERS Safety Report 5178815-4 (Version None)
Quarter: 2006Q4

REPORT INFORMATION
  Report Type: 
  Country: None (occurrence: None)
  Receive Date: 20061208
  Receipt Date: 20061127
  Transmission Date: 20070319
  Serious: Yes (Other)
  Sender: FDA-Public Use
  Company Number: 2006145548

PATIENT
  Age: 73 Year
  Sex: Female
  Weight: 48.5349 kg

DRUGS (11)
  1. CELEBREX [Suspect]
     Indication: ARTHRITIS
     Dosage: 200 MG (200 MG, 1 IN 1 D)
  2. NEURONTIN [Suspect]
     Indication: BURNING SENSATION
  3. HYDROCHLOROTHIAZIDE/TRIAMTERENE (HYDROCHLOROTHIAZIDE, TRIAMTERENE) [Suspect]
     Indication: SWELLING
  4. ALTACE [Concomitant]
  5. ZOCOR (ACYCLOVIR) [Concomitant]
  6. ACYCLOVIR [Concomitant]
  7. ASPIRIN [Concomitant]
  8. MULTIVITAMIN AND MINERAL SUPPLEMENT (MINERALS NOS, VITAMINS NOS) [Concomitant]
  9. VITAMIN C (VITAMIN C) [Concomitant]
  10. OSTEO BI-FLEX (CHONDROITIN SULFATE, GLUCOSAMINE HYDROCHLORIDE) [Concomitant]
  11. FISH OIL (FISH OIL) [Concomitant]

REACTIONS (7)
  - ARTHRITIS [None]
  - BURNING SENSATION [None]
  - DRUG INEFFECTIVE [None]
  - DRY MOUTH [None]
  - HYPOAESTHESIA [None]
  - NERVE INJURY [None]
  - OEDEMA PERIPHERAL [None]
